FAERS Safety Report 21856195 (Version 1)
Quarter: 2023Q1

REPORT INFORMATION
  Report Type: Spontaneous
  Country: US (occurrence: US)
  Receive Date: 20230112
  Receipt Date: 20230112
  Transmission Date: 20230418
  Serious: Yes (Other)
  Sender: FDA-Public Use
  Company Number: US-ACERUSPHRM-2022-US-000676

PATIENT
  Sex: Male

DRUGS (2)
  1. TESTOSTERONE [Suspect]
     Active Substance: TESTOSTERONE
     Indication: Product used for unknown indication
  2. APIXABAN [Concomitant]
     Active Substance: APIXABAN
     Indication: Mesenteric vein thrombosis

REACTIONS (1)
  - Mesenteric vein thrombosis [Unknown]
